FAERS Safety Report 24866684 (Version 1)
Quarter: 2025Q1

REPORT INFORMATION
  Report Type: Report from Study
  Country: US (occurrence: US)
  Receive Date: 20250121
  Receipt Date: 20250121
  Transmission Date: 20250409
  Serious: Yes (Other)
  Sender: CSL BEHRING
  Company Number: US-BEH-2023154272

PATIENT
  Age: 73 Year
  Sex: Female

DRUGS (2)
  1. BERINERT [Suspect]
     Active Substance: HUMAN C1-ESTERASE INHIBITOR
     Indication: Hereditary angioedema
     Dosage: 4000 INTERNATIONAL UNIT/KILOGRAM, BIW
     Route: 058
  2. BERINERT [Suspect]
     Active Substance: HUMAN C1-ESTERASE INHIBITOR
     Indication: Prophylaxis
     Dosage: 4000 INTERNATIONAL UNIT/KILOGRAM, BIW
     Route: 058
     Dates: start: 20250109, end: 20250109

REACTIONS (9)
  - Hereditary angioedema [Recovered/Resolved]
  - Illness [Unknown]
  - Cough [Unknown]
  - Therapy interrupted [Unknown]
  - Nervous system disorder [Unknown]
  - Limb discomfort [Unknown]
  - Asthenia [Unknown]
  - Speech disorder [Unknown]
  - Dyskinesia [Unknown]

NARRATIVE: CASE EVENT DATE: 20250109
